FAERS Safety Report 11862701 (Version 4)
Quarter: 2016Q1

REPORT INFORMATION
  Report Type: Spontaneous
  Country: DE (occurrence: DE)
  Receive Date: 20151223
  Receipt Date: 20160224
  Transmission Date: 20160526
  Serious: Yes (Death, Hospitalization)
  Sender: FDA-Public Use
  Company Number: DE-AMGEN-DEUSP2015136362

PATIENT
  Sex: Male

DRUGS (36)
  1. CYCLOPHOSPHAMIDE. [Suspect]
     Active Substance: CYCLOPHOSPHAMIDE
     Indication: B-CELL LYMPHOMA
     Dosage: CYCLE 1, LAST DOSE PRIOR TO SAE- 21/OCT/2015 (1418.4 MG,1 IN 14 D)
     Route: 042
     Dates: start: 20150728, end: 20151021
  2. DOXORUBICIN [Suspect]
     Active Substance: DOXORUBICIN
     Dosage: CYCLE 2(94.6 MG,1 IN 14 D)
     Route: 042
     Dates: start: 20150811, end: 20150825
  3. DOXORUBICIN [Suspect]
     Active Substance: DOXORUBICIN
     Dosage: CYCLE 3(94.6 MG,1 IN 14 D)
     Route: 042
     Dates: start: 20150828
  4. RITUXIMAB [Suspect]
     Active Substance: RITUXIMAB
     Indication: B-CELL LYMPHOMA
     Dosage: CYCLE 1, LAST DOSE PRIOR TO SAE - 21/OCT/2015 (709.2 MG,1 IN 14 D)
     Route: 042
     Dates: start: 20150727, end: 20151021
  5. RITUXIMAB [Suspect]
     Active Substance: RITUXIMAB
     Dosage: CYCLE 4: MOST RECENT DOSE PRIOR TO EVENT: 15/SEP/2015 (709.2 MG,1 IN 14 D)
     Route: 042
     Dates: start: 20150915
  6. PREDNISOLONE. [Suspect]
     Active Substance: PREDNISOLONE
     Dosage: CYCLE 3(650 MG,1 IN 14 D)
     Route: 048
     Dates: start: 20150828
  7. ACICLOVIR [Concomitant]
     Active Substance: ACYCLOVIR
     Indication: INFECTION PROPHYLAXIS
     Dosage: 400 MG, 3 IN 1 D
     Route: 048
     Dates: start: 20150728, end: 20151023
  8. PREDNISOLONE. [Suspect]
     Active Substance: PREDNISOLONE
     Dosage: CYCLE 4: MOST RECENT DOSE PRIOR TO EVENT: 15/SEP/2015 (650 MG,1 IN 14 D)
     Route: 048
     Dates: start: 20150915
  9. HYDROCHLOROTHIAZID [Concomitant]
     Active Substance: HYDROCHLOROTHIAZIDE
     Indication: HYPERTENSION
     Dosage: (12.5 MG,1 IN 1 D)
     Route: 048
     Dates: start: 2014, end: 20151023
  10. SIMVASTATIN. [Concomitant]
     Active Substance: SIMVASTATIN
     Indication: HYPERTENSION
     Dosage: 30 MG, 1 IN 1 D
     Route: 048
     Dates: start: 2014, end: 20150925
  11. VINCRISTINE [Suspect]
     Active Substance: VINCRISTINE
     Dosage: CYCLE 2(1 MG,1 IN 14 D)
     Route: 042
     Dates: start: 20150811
  12. PREDNISOLONE. [Suspect]
     Active Substance: PREDNISOLONE
     Indication: B-CELL LYMPHOMA
     Dosage: CYCLE 1, LAST DOSE PRIOR TO SAE- 21/OCT/2015 (650 MG,1 IN 14 D)
     Route: 048
     Dates: start: 20150727, end: 20151024
  13. PREDNISOLONE. [Suspect]
     Active Substance: PREDNISOLONE
     Dosage: CYCLE 2(650 MG,1 IN 14 D)
     Route: 048
     Dates: start: 20150811
  14. CIPROFLOXACIN. [Concomitant]
     Active Substance: CIPROFLOXACIN
     Indication: VITAMIN D DEFICIENCY
     Dosage: 400 MG, 2 IN 1 D
     Route: 048
     Dates: start: 20150728
  15. INSULIN HUMAN [Concomitant]
     Active Substance: INSULIN HUMAN
     Dosage: UNK
     Route: 048
     Dates: start: 20150728
  16. SULFAMETHOXAZOLE-TRIMETHOPRIM (SMZ) [Concomitant]
     Active Substance: SULFAMETHOXAZOLE\TRIMETHOPRIM
     Indication: INFECTION PROPHYLAXIS
     Dosage: 960 MG, 1-0-1, AT WEEKEND
     Route: 048
     Dates: start: 20150728, end: 20151023
  17. ACTRAPID [Concomitant]
     Active Substance: INSULIN HUMAN
     Dosage: UNK
  18. RITUXIMAB [Suspect]
     Active Substance: RITUXIMAB
     Dosage: CYCLE 3 (709.2 MG,1 IN 14 D)
     Route: 042
     Dates: start: 20150828
  19. ASA [Concomitant]
     Active Substance: ASPIRIN
     Indication: CORONARY ARTERY DISEASE
     Dosage: 100 MG, 1 IN 1 D
     Route: 048
     Dates: start: 20151001, end: 20151023
  20. CIPROFLOXACIN. [Concomitant]
     Active Substance: CIPROFLOXACIN
     Indication: INFECTION PROPHYLAXIS
     Dosage: 500 MG, 2 IN 1 D
     Route: 048
     Dates: start: 20150728, end: 20151023
  21. COLECALCIFEROL [Concomitant]
     Active Substance: CHOLECALCIFEROL
     Dosage: UNK
     Route: 058
     Dates: start: 2015, end: 20151023
  22. DOXORUBICIN [Suspect]
     Active Substance: DOXORUBICIN
     Indication: B-CELL LYMPHOMA
     Dosage: CYCLE 1, (94.6 MG,1 IN 14 D)
     Route: 042
     Dates: start: 20150728, end: 20150825
  23. VINCRISTINE [Suspect]
     Active Substance: VINCRISTINE
     Dosage: CYCLE 3(1 MG,1 IN 14 D)
     Route: 042
     Dates: start: 20150828
  24. VINCRISTINE [Suspect]
     Active Substance: VINCRISTINE
     Dosage: CYCLE 3(1 MG,1 IN 14 D)
     Route: 042
     Dates: start: 20150915
  25. CYCLOPHOSPHAMIDE. [Suspect]
     Active Substance: CYCLOPHOSPHAMIDE
     Dosage: CYCLE 2 (1418.4 MG,14 D)
     Route: 042
     Dates: start: 20150811
  26. RAMIPRIL. [Concomitant]
     Active Substance: RAMIPRIL
     Indication: HYPERTENSION
     Dosage: (2.5 MG,1)
     Route: 048
     Dates: start: 2014, end: 20151023
  27. COLECALCIFEROL [Concomitant]
     Active Substance: CHOLECALCIFEROL
     Indication: VITAMIN D DEFICIENCY
     Dosage: 2000 IU, 1 IN 1 WK
     Route: 058
     Dates: start: 20140728
  28. FLUTICASONE W/SALMETEROL [Concomitant]
     Active Substance: FLUTICASONE PROPIONATE\SALMETEROL XINAFOATE
     Indication: ASTHMA
     Dosage: UNK UNK, 1-0-1
     Route: 048
     Dates: start: 2014, end: 20151023
  29. CLOPIDOGREL [Concomitant]
     Active Substance: CLOPIDOGREL BISULFATE
     Indication: CORONARY ARTERY DISEASE
     Dosage: 75 MG, 1 IN 1 D
     Dates: start: 20151006, end: 20151023
  30. FILGRASTIM [Suspect]
     Active Substance: FILGRASTIM
     Indication: B-CELL LYMPHOMA
     Dosage: 1000000S (48 MIU, 1 IN 14 D0
     Route: 058
     Dates: start: 20150801, end: 20151024
  31. RITUXIMAB [Suspect]
     Active Substance: RITUXIMAB
     Dosage: CYCLE 2 (709.2 MG,1 IN 14 D)
     Route: 042
     Dates: start: 20150811
  32. CYCLOPHOSPHAMIDE. [Suspect]
     Active Substance: CYCLOPHOSPHAMIDE
     Dosage: CYCLE 3 (1418.4 MG,14 D)
     Route: 042
     Dates: start: 20150828
  33. CYCLOPHOSPHAMIDE. [Suspect]
     Active Substance: CYCLOPHOSPHAMIDE
     Dosage: CYCLE 4 (1418.4 MG,14 D)
     Route: 042
     Dates: start: 20150915
  34. VINCRISTINE [Suspect]
     Active Substance: VINCRISTINE
     Indication: B-CELL LYMPHOMA
     Dosage: CYCLE 1, LAST DOSE PRIOR TO SAE- 21/OCT/2015 (1 MG,1 IN 14 D)
     Route: 042
     Dates: start: 20150728, end: 20151021
  35. SIMVASTATIN. [Concomitant]
     Active Substance: SIMVASTATIN
     Dosage: 12.5 MG, 1 IN 1 D
     Route: 048
     Dates: start: 2014, end: 20151023
  36. COLECALCIFEROL [Concomitant]
     Active Substance: CHOLECALCIFEROL
     Dosage: 2000 IU, 1 IN 1 WK
     Route: 058
     Dates: start: 20150728, end: 20151023

REACTIONS (2)
  - Cardiac failure congestive [Fatal]
  - Sudden death [Fatal]

NARRATIVE: CASE EVENT DATE: 20150925
